FAERS Safety Report 16638188 (Version 10)
Quarter: 2019Q3

REPORT INFORMATION
  Report Type: Report from Study
  Country: GB (occurrence: GB)
  Receive Date: 20190726
  Receipt Date: 20190910
  Transmission Date: 20191004
  Serious: Yes (Hospitalization)
  Sender: FDA-Public Use
  Company Number: GB-EISAI MEDICAL RESEARCH-EC-2019-059377

PATIENT
  Age: 46 Year
  Sex: Male
  Weight: 77.8 kg

DRUGS (6)
  1. ACETAMINOPHEN. [Concomitant]
     Active Substance: ACETAMINOPHEN
     Dates: start: 20180601
  2. DOCUSATE SODIUM. [Concomitant]
     Active Substance: DOCUSATE SODIUM
     Dates: start: 20190705, end: 20190714
  3. LENVATINIB [Suspect]
     Active Substance: LENVATINIB
     Indication: BILIARY NEOPLASM
     Route: 048
     Dates: start: 20190710, end: 20190719
  4. PEMBROLIZUMAB. [Suspect]
     Active Substance: PEMBROLIZUMAB
     Indication: BILIARY NEOPLASM
     Route: 041
     Dates: start: 20190710, end: 20190710
  5. ORAMORPH [Concomitant]
     Active Substance: MORPHINE SULFATE
     Dates: start: 20190707
  6. MOVICOL [Concomitant]
     Active Substance: POLYETHYLENE GLYCOL 3350\POTASSIUM CHLORIDE\SODIUM BICARBONATE\SODIUM CHLORIDE
     Dates: start: 20190701, end: 20190714

REACTIONS (2)
  - Abdominal pain [Not Recovered/Not Resolved]
  - Rash [Recovered/Resolved]

NARRATIVE: CASE EVENT DATE: 20190713
